FAERS Safety Report 10398030 (Version 2)
Quarter: 2014Q3

REPORT INFORMATION
  Report Type: Spontaneous
  Country: US (occurrence: US)
  Receive Date: 20140821
  Receipt Date: 20140821
  Transmission Date: 20150326
  Serious: Yes (Other)
  Sender: FDA-Public Use
  Company Number: US-AMGEN-USASP2014008166

PATIENT
  Age: 3 Month
  Sex: Female
  Weight: 10.02 kg

DRUGS (3)
  1. MACROBID [Concomitant]
     Active Substance: NITROFURANTOIN\NITROFURANTOIN MONOHYDRATE
     Indication: URINARY TRACT INFECTION
     Dosage: 100 MG, BID
     Route: 064
  2. PREDNISONE. [Concomitant]
     Active Substance: PREDNISONE
     Indication: PSORIATIC ARTHROPATHY
     Dosage: 5 MG, QD
     Dates: start: 201301
  3. ENBREL [Suspect]
     Active Substance: ETANERCEPT
     Indication: EXPOSURE DURING BREAST FEEDING
     Dosage: 50 MG, QWK
     Route: 063
     Dates: start: 201105

REACTIONS (6)
  - Ulna fracture [Recovered/Resolved]
  - Respiratory syncytial virus infection [Unknown]
  - Bronchiolitis [Recovered/Resolved]
  - Ear infection [Recovered/Resolved]
  - Gastrooesophageal reflux disease [Unknown]
  - Radius fracture [Recovered/Resolved]

NARRATIVE: CASE EVENT DATE: 2013
